FAERS Safety Report 15603989 (Version 1)
Quarter: 2018Q4

REPORT INFORMATION
  Report Type: Spontaneous
  Country: US (occurrence: US)
  Receive Date: 20181109
  Receipt Date: 20181109
  Transmission Date: 20190205
  Serious: No
  Sender: FDA-Public Use
  Company Number: US-AMGEN-KDL443103

PATIENT
  Age: 63 Year
  Sex: Female
  Weight: 61.3 kg

DRUGS (7)
  1. AMLODIPINE [Concomitant]
     Active Substance: AMLODIPINE BESYLATE
     Dosage: 10 MG, QD
     Route: 048
     Dates: start: 2005
  2. PROCRIT [Suspect]
     Active Substance: ERYTHROPOIETIN
     Dosage: 20000 IU, UNK
     Dates: start: 2010
  3. CLONIDINE. [Concomitant]
     Active Substance: CLONIDINE
     Dosage: .2 MG, BID
     Route: 048
     Dates: start: 2008
  4. TRAMADOL. [Concomitant]
     Active Substance: TRAMADOL
     Dosage: 325 MG, BID
     Route: 048
     Dates: start: 2005
  5. TOPROL XL [Concomitant]
     Active Substance: METOPROLOL SUCCINATE
     Dosage: 100 MG, BID
     Route: 048
     Dates: start: 2005
  6. WARFARIN SODIUM. [Concomitant]
     Active Substance: WARFARIN SODIUM
     Dosage: 5 MG, 4 TIMES/WK
     Route: 048
     Dates: start: 201001
  7. PROCRIT [Suspect]
     Active Substance: ERYTHROPOIETIN
     Indication: ANAEMIA
     Dosage: 40000 IU, Q2WK
     Route: 058
     Dates: start: 20100623

REACTIONS (4)
  - Injection site swelling [Recovered/Resolved]
  - Injection site erythema [Recovered/Resolved]
  - Inflammation [Recovered/Resolved]
  - Injection site pain [Recovered/Resolved]

NARRATIVE: CASE EVENT DATE: 20100623
